FAERS Safety Report 6407144-3 (Version None)
Quarter: 2009Q4

REPORT INFORMATION
  Report Type: 
  Country: None (occurrence: None)
  Receive Date: 20091020
  Receipt Date: 20091008
  Transmission Date: 20100525
  Serious: Yes (Other)
  Sender: FDA-Public Use
  Company Number: ES-CELGENEUS-144-21880-09100641

PATIENT
  Age: 78 Year
  Sex: Male

DRUGS (6)
  1. REVLIMID [Suspect]
     Indication: MULTIPLE MYELOMA
     Route: 048
     Dates: start: 20090601, end: 20090801
  2. REVLIMID [Suspect]
     Route: 048
     Dates: start: 20090801, end: 20090901
  3. DEXAMETHASONE [Concomitant]
     Indication: MULTIPLE MYELOMA
     Route: 065
     Dates: start: 20090601
  4. DEXAMETHASONE [Concomitant]
     Route: 065
  5. HYDROXICIN [Concomitant]
     Indication: MULTIPLE MYELOMA
     Route: 065
     Dates: start: 20090101
  6. HYDROXICIN [Concomitant]
     Route: 065

REACTIONS (2)
  - SCRATCH [None]
  - URTICARIA [None]
